FAERS Safety Report 10951896 (Version 2)
Quarter: 2015Q3

REPORT INFORMATION
  Report Type: Spontaneous
  Country: CZ (occurrence: CZ)
  Receive Date: 20150325
  Receipt Date: 20150922
  Transmission Date: 20151125
  Serious: Yes (Life-Threatening, Hospitalization, Other)
  Sender: FDA-Public Use
  Company Number: CZ-MERCK-1503CZE009952

PATIENT
  Age: 84 Year
  Sex: Female

DRUGS (23)
  1. TIAPRIDAL [Concomitant]
     Active Substance: TIAPRIDE HYDROCHLORIDE
     Dosage: UNK , Q12H
     Route: 048
  2. CODEINE [Concomitant]
     Active Substance: CODEINE
     Route: 048
  3. AMOXICILLIN TRIHYDRATE [Concomitant]
     Active Substance: AMOXICILLIN
     Route: 048
  4. KLACID (CLARITHROMYCIN LACTOBIONATE) [Concomitant]
     Active Substance: CLARITHROMYCIN
  5. LUSOPRESS [Concomitant]
     Active Substance: NITRENDIPINE
     Route: 048
  6. LUSOPRESS [Concomitant]
     Active Substance: NITRENDIPINE
     Route: 048
  7. FRAXIPARINE [Concomitant]
     Active Substance: NADROPARIN CALCIUM
     Route: 051
  8. FURON [Concomitant]
     Active Substance: FUROSEMIDE
     Dosage: 40 MG, Q24H
     Route: 048
  9. INVANZ [Suspect]
     Active Substance: ERTAPENEM SODIUM
     Indication: PNEUMONIA
     Dosage: 1 G, Q24H
     Route: 042
     Dates: start: 20150306, end: 20150309
  10. MYCOMAX INF [Concomitant]
     Dosage: UNK
     Route: 041
     Dates: start: 20150306
  11. FRAXIPARINE [Concomitant]
     Active Substance: NADROPARIN CALCIUM
     Route: 051
  12. ANOPYRIN [Concomitant]
     Active Substance: ASPIRIN
     Route: 048
  13. HELICID (OMEPRAZOLE) [Concomitant]
     Dosage: 20 MG, 1-0-1
  14. ATROVENT [Concomitant]
     Active Substance: IPRATROPIUM BROMIDE
     Route: 055
  15. CALTRATE PLUS (CALCIUM CARBONATE (+) CHOLECALCIFEROL (+) CUPRIC OXIDE [Concomitant]
     Route: 048
  16. LOSEPRAZOL [Concomitant]
     Active Substance: OMEPRAZOLE
     Route: 048
  17. BETALOC ZOK [Concomitant]
     Active Substance: METOPROLOL SUCCINATE
     Route: 048
  18. TREXAN (METHOTREXATE) [Concomitant]
     Active Substance: METHOTREXATE SODIUM
     Dosage: 1-0-0
  19. TORVACARD [Concomitant]
     Active Substance: ATORVASTATIN CALCIUM
     Route: 048
  20. TORVACARD [Concomitant]
     Active Substance: ATORVASTATIN CALCIUM
     Route: 048
  21. MUCOSOLVAN [Concomitant]
     Active Substance: AMBROXOL\CLENBUTEROL
     Route: 048
  22. TIAPRIDAL [Concomitant]
     Active Substance: TIAPRIDE HYDROCHLORIDE
     Route: 048
  23. ESSENTIALE FORTE (PHOSPHOLIPIDS (UNSPECIFIED)) [Concomitant]
     Route: 048

REACTIONS (1)
  - Neutropenia [Unknown]

NARRATIVE: CASE EVENT DATE: 20150309
